FAERS Safety Report 15080728 (Version 3)
Quarter: 2019Q3

REPORT INFORMATION
  Report Type: Other
  Country: DE (occurrence: DE)
  Receive Date: 20180628
  Receipt Date: 20190921
  Transmission Date: 20191004
  Serious: Yes (Other)
  Sender: FDA-Public Use
  Company Number: DE-MACLEODS PHARMACEUTICALS US LTD-MAC2018014376

PATIENT

DRUGS (2)
  1. CLOPIDOGREL [Suspect]
     Active Substance: CLOPIDOGREL BISULFATE
     Indication: ANTICOAGULANT THERAPY
     Dosage: UNK
     Route: 065
  2. CLOPIDOGREL RATIOPHARM 75MG [Suspect]
     Active Substance: CLOPIDOGREL BISULFATE
     Indication: ANTICOAGULANT THERAPY
     Dosage: 1 DOSAGE FORM, QD
     Route: 065
     Dates: start: 201508

REACTIONS (13)
  - Cardiovascular disorder [Unknown]
  - Movement disorder [Unknown]
  - Back pain [Unknown]
  - Blood pressure decreased [Unknown]
  - Poor quality sleep [Unknown]
  - Fatigue [Unknown]
  - Cardiac arrest [Unknown]
  - Sleep paralysis [Recovered/Resolved]
  - Reaction to excipient [Unknown]
  - Dyspepsia [Unknown]
  - Pruritus [Unknown]
  - Dizziness [Unknown]
  - Headache [Unknown]

NARRATIVE: CASE EVENT DATE: 201805
